FAERS Safety Report 8965764 (Version 1)
Quarter: 2012Q4

REPORT INFORMATION
  Report Type: Spontaneous
  Country: US (occurrence: None)
  Receive Date: 20121213
  Receipt Date: 20121213
  Transmission Date: 20130627
  Serious: No
  Sender: FDA-Public Use
  Company Number: None

PATIENT
  Sex: Female
  Weight: 24.22 kg

DRUGS (1)
  1. MONTELUKAST [Suspect]

REACTIONS (2)
  - Rhinitis [None]
  - No therapeutic response [None]
